FAERS Safety Report 25313706 (Version 1)
Quarter: 2025Q2

REPORT INFORMATION
  Report Type: Spontaneous
  Country: US (occurrence: US)
  Receive Date: 20250514
  Receipt Date: 20250514
  Transmission Date: 20250716
  Serious: No
  Sender: PFIZER
  Company Number: US-PFIZER INC-202500099797

PATIENT
  Age: 77 Year
  Sex: Male
  Weight: 88.9 kg

DRUGS (1)
  1. PAXLOVID [Suspect]
     Active Substance: NIRMATRELVIR\RITONAVIR
     Indication: COVID-19 treatment
     Dosage: 1X/DAY (ONE A DAY, HAVE 5 PILLS FOR 5 DAYS)

REACTIONS (1)
  - Product prescribing error [Unknown]
